FAERS Safety Report 11465236 (Version 2)
Quarter: 2015Q3

REPORT INFORMATION
  Report Type: Spontaneous
  Country: US (occurrence: US)
  Receive Date: 20150907
  Receipt Date: 20150928
  Transmission Date: 20151125
  Serious: No
  Sender: FDA-Public Use
  Company Number: US-009507513-1509USA002843

PATIENT

DRUGS (1)
  1. INVANZ [Suspect]
     Active Substance: ERTAPENEM SODIUM
     Indication: INFECTION
     Dosage: DETERMINED BY INPATIENT INFECTIOUS DISEASE CONSULTANT (RECOMMENDED DOSING WAS 1 G DAILY)
     Route: 051

REACTIONS (1)
  - Rash [Unknown]
